FAERS Safety Report 23195866 (Version 3)
Quarter: 2023Q4

REPORT INFORMATION
  Report Type: Report from Study
  Country: JP (occurrence: JP)
  Receive Date: 20231117
  Receipt Date: 20231228
  Transmission Date: 20240110
  Serious: Yes (Hospitalization, Other)
  Sender: FDA-Public Use
  Company Number: JP-ALXN-A202202453AA

PATIENT
  Age: 8 Year
  Sex: Female
  Weight: 18 kg

DRUGS (3)
  1. STRENSIQ [Suspect]
     Active Substance: ASFOTASE ALFA
     Indication: Hypophosphatasia
     Dosage: 2 MILLIGRAM/KILOGRAM, TIW
     Route: 058
     Dates: start: 20150928, end: 20220614
  2. STRENSIQ [Suspect]
     Active Substance: ASFOTASE ALFA
     Dosage: 2.2 MILLIGRAM/KILOGRAM, TIW
     Route: 058
     Dates: start: 20220615
  3. STRENSIQ [Suspect]
     Active Substance: ASFOTASE ALFA
     Dosage: 2.2 MILLIGRAM/KILOGRAM, TIW
     Route: 065
     Dates: start: 20220928, end: 20230927

REACTIONS (4)
  - COVID-19 [Recovered/Resolved]
  - Rickets [Recovered/Resolved]
  - Condition aggravated [Recovered/Resolved]
  - Drug ineffective [Unknown]

NARRATIVE: CASE EVENT DATE: 20220306
